FAERS Safety Report 9326082 (Version 3)
Quarter: 2013Q2

REPORT INFORMATION
  Report Type: Report from Study
  Country: PE (occurrence: PE)
  Receive Date: 20130604
  Receipt Date: 20130610
  Transmission Date: 20140414
  Serious: Yes (Life-Threatening, Hospitalization)
  Sender: FDA-Public Use
  Company Number: PE-ASTRAZENECA-2013SE37796

PATIENT
  Age: 29716 Day
  Sex: Male

DRUGS (12)
  1. AZD6140 [Suspect]
     Indication: CORONARY ARTERY DISEASE
     Route: 048
     Dates: start: 20110401, end: 20110705
  2. AZD6140 [Suspect]
     Indication: CORONARY ARTERY DISEASE
     Route: 048
     Dates: start: 20110721, end: 20120625
  3. AZD6140 [Suspect]
     Indication: CORONARY ARTERY DISEASE
     Route: 048
     Dates: start: 20120629, end: 20120705
  4. AZD6140 [Suspect]
     Indication: CORONARY ARTERY DISEASE
     Route: 048
     Dates: start: 20120717, end: 20130523
  5. ASA [Suspect]
     Route: 048
     Dates: end: 20110706
  6. ASA [Suspect]
     Route: 048
     Dates: start: 20110721, end: 20120626
  7. ASA [Suspect]
     Route: 048
     Dates: start: 20120628, end: 20130212
  8. ASA [Suspect]
     Route: 048
     Dates: start: 20130216, end: 20130220
  9. ASA [Suspect]
     Route: 048
     Dates: start: 20130224
  10. ATORVASTATIN [Concomitant]
     Indication: HYPERLIPIDAEMIA
     Route: 048
  11. LOSARTAN [Concomitant]
     Indication: BLOOD PRESSURE INCREASED
     Route: 048
  12. AMLODIPINE [Concomitant]
     Indication: BLOOD PRESSURE INCREASED
     Route: 048

REACTIONS (1)
  - Gastric ulcer haemorrhage [Not Recovered/Not Resolved]
